FAERS Safety Report 24190850 (Version 1)
Quarter: 2024Q3

REPORT INFORMATION
  Report Type: Spontaneous
  Country: US (occurrence: US)
  Receive Date: 20240808
  Receipt Date: 20240808
  Transmission Date: 20241016
  Serious: No
  Sender: ABBVIE
  Company Number: US-ABBVIE-5871265

PATIENT

DRUGS (1)
  1. KYBELLA [Suspect]
     Active Substance: DEOXYCHOLIC ACID
     Indication: Lipoinjection
     Dosage: TIME INTERVAL: AS NECESSARY
     Route: 058

REACTIONS (2)
  - Off label use [Unknown]
  - Mass [Unknown]
